FAERS Safety Report 4342365-5 (Version None)
Quarter: 2004Q2

REPORT INFORMATION
  Report Type: 
  Country: None (occurrence: None)
  Receive Date: 20040415
  Receipt Date: 20040405
  Transmission Date: 20050107
  Serious: Yes (Other)
  Sender: FDA-Public Use
  Company Number: HQWYE258030MAR04

PATIENT
  Age: 54 Year
  Sex: Female

DRUGS (1)
  1. EFFEXOR XR [Suspect]
     Indication: DEPRESSION
     Dosage: 75 MG 1X PER 1 DAY ORAL
     Route: 048
     Dates: start: 20030801, end: 20040327

REACTIONS (5)
  - ERYTHEMA [None]
  - EYE SWELLING [None]
  - PHOTOSENSITIVITY REACTION [None]
  - PRURITUS [None]
  - SWELLING FACE [None]
